FAERS Safety Report 7750391-9 (Version None)
Quarter: 2011Q3

REPORT INFORMATION
  Report Type: 
  Country: None (occurrence: None)
  Receive Date: 20110914
  Receipt Date: 20110908
  Transmission Date: 20111222
  Serious: Yes (Other)
  Sender: FDA-Public Use
  Company Number: US-ABBOTT-11P-163-0852610-00

PATIENT
  Sex: Male
  Weight: 90.8 kg

DRUGS (8)
  1. NIASPAN [Suspect]
     Indication: HIGH DENSITY LIPOPROTEIN DECREASED
     Route: 048
     Dates: start: 20071101, end: 20101101
  2. NIASPAN [Suspect]
     Indication: CORONARY ARTERY DISEASE
     Dosage: 2 IN 1 DAY, AT BEDTIME
     Route: 048
     Dates: start: 20110501
  3. GABAPENTIN [Concomitant]
     Indication: RESTLESS LEGS SYNDROME
     Route: 048
  4. ASPIRIN [Concomitant]
     Indication: CORONARY ARTERY DISEASE
     Dosage: 30 MINUTES BEFORE NIASPAN
     Route: 048
  5. ATENOLOL [Concomitant]
     Indication: HYPERTENSION
     Route: 048
  6. CELEBREX [Concomitant]
     Indication: ARTHRITIS
     Route: 048
  7. LIPITOR [Suspect]
     Indication: PRODUCT USED FOR UNKNOWN INDICATION
     Dates: start: 20070101, end: 20101101
  8. PLAVIX [Concomitant]
     Indication: CORONARY ARTERY DISEASE
     Route: 048

REACTIONS (5)
  - CORONARY ARTERY OCCLUSION [None]
  - HIGH DENSITY LIPOPROTEIN DECREASED [None]
  - FLUSHING [None]
  - MUSCULAR WEAKNESS [None]
  - PAIN IN EXTREMITY [None]
